FAERS Safety Report 10063976 (Version 2)
Quarter: 2014Q2

REPORT INFORMATION
  Report Type: Report from Study
  Country: US (occurrence: US)
  Receive Date: 20140408
  Receipt Date: 20140611
  Transmission Date: 20141212
  Serious: Yes (Hospitalization)
  Sender: FDA-Public Use
  Company Number: US-BIOGENIDEC-2014BI031480

PATIENT
  Age: 57 Year
  Sex: Female

DRUGS (14)
  1. TECFIDERA [Suspect]
     Indication: MULTIPLE SCLEROSIS
     Route: 048
     Dates: start: 20140220
  2. TECFIDERA [Suspect]
     Indication: MULTIPLE SCLEROSIS
     Route: 048
     Dates: end: 20140323
  3. KLONOPIN [Concomitant]
  4. REQUIP [Concomitant]
  5. SANCTURA [Concomitant]
  6. ZOLOFT [Concomitant]
  7. LIPITOR [Concomitant]
  8. FENOFIBRATE [Concomitant]
  9. GABAPENTIN [Concomitant]
  10. AMITRIPTYLINE [Concomitant]
  11. OMEPRAZOLE [Concomitant]
  12. LORATADINE [Concomitant]
  13. XARELTO [Concomitant]
  14. PERCOCET [Concomitant]

REACTIONS (4)
  - Urinary tract infection [Recovered/Resolved]
  - Mental status changes [Unknown]
  - Fall [Recovered/Resolved]
  - Hallucination [Unknown]
